FAERS Safety Report 9449890 (Version 2)
Quarter: 2013Q3

REPORT INFORMATION
  Report Type: Spontaneous
  Country: JP (occurrence: JP)
  Receive Date: 20130809
  Receipt Date: 20130819
  Transmission Date: 20140515
  Serious: Yes (Hospitalization, Other)
  Sender: FDA-Public Use
  Company Number: JP-009507513-1308JPN001279

PATIENT
  Age: 24 Year
  Sex: Female

DRUGS (2)
  1. REFLEX [Suspect]
     Dosage: 990 MG, QD
     Route: 048
  2. CHLORPROMAZINE HYDROCHLORIDE [Suspect]
     Dosage: 3000MG,QD
     Route: 048

REACTIONS (4)
  - Cardiac arrest [Recovering/Resolving]
  - Toxicity to various agents [Recovering/Resolving]
  - Electrocardiogram QT prolonged [Unknown]
  - Overdose [Unknown]
